FAERS Safety Report 7406403-5 (Version None)
Quarter: 2011Q2

REPORT INFORMATION
  Report Type: 
  Country: None (occurrence: None)
  Receive Date: 20110411
  Receipt Date: 20110401
  Transmission Date: 20111010
  Serious: Yes (Hospitalization)
  Sender: FDA-Public Use
  Company Number: US-EISAI INC-E7389-01141-CLI-US

PATIENT
  Sex: Female

DRUGS (29)
  1. E7389 (BOLD) [Suspect]
     Indication: NON-SMALL CELL LUNG CANCER
     Route: 041
     Dates: start: 20100813
  2. VITAMIN B6 [Concomitant]
     Route: 048
     Dates: start: 20100301
  3. ALOXI [Concomitant]
     Indication: NAUSEA
     Route: 042
     Dates: start: 20101014, end: 20101014
  4. OMEPRAZOLE [Concomitant]
     Route: 048
     Dates: start: 19890101
  5. ASPIRIN [Concomitant]
     Route: 048
     Dates: start: 19990101
  6. IBUPROFEN [Concomitant]
     Route: 048
     Dates: start: 20090903
  7. FISH OIL [Concomitant]
     Route: 048
     Dates: start: 20000101
  8. MULTI-VITAMINS [Concomitant]
     Route: 048
     Dates: start: 20000101
  9. TESSALON [Concomitant]
     Indication: PAIN
  10. VITAMIN D [Concomitant]
     Indication: OSTEOPENIA
     Route: 048
     Dates: start: 20050101
  11. DETROL LA [Concomitant]
     Indication: INCONTINENCE
     Route: 048
     Dates: start: 20010101
  12. CALCIUM [Concomitant]
     Indication: OSTEOPENIA
     Route: 048
     Dates: start: 20050101
  13. ALOXI [Concomitant]
     Route: 042
     Dates: start: 20100813, end: 20100813
  14. DEXAMETHASONE [Concomitant]
     Route: 048
     Dates: start: 20100812
  15. METOPROLOL TARTRATE [Concomitant]
     Indication: HYPERTENSION
     Route: 048
     Dates: start: 20090724
  16. SIMVASTATIN [Concomitant]
     Indication: HYPERCHOLESTEROLAEMIA
     Route: 048
     Dates: start: 20030101
  17. ASCORBIC ACID [Concomitant]
     Route: 048
     Dates: start: 20050101
  18. ALPRAZOLAM [Concomitant]
     Indication: ANXIETY
     Route: 048
     Dates: start: 20100506
  19. ALOXI [Concomitant]
     Route: 042
     Dates: start: 20100902, end: 20100902
  20. TESSALON [Concomitant]
     Route: 048
     Dates: start: 20110113
  21. FEXOFENADINE [Concomitant]
     Dosage: UNKOWN
     Route: 048
     Dates: start: 20070101
  22. PEMETREXED [Suspect]
     Indication: NON-SMALL CELL LUNG CANCER
     Route: 041
     Dates: start: 20100813
  23. ATIVAN [Concomitant]
     Indication: ANXIETY
     Route: 048
     Dates: start: 20090811
  24. ACETAMINOPHEN [Concomitant]
     Indication: HEADACHE
     Route: 048
     Dates: start: 20100910
  25. FOLIC ACID [Concomitant]
     Route: 048
     Dates: start: 20100805
  26. ALOXI [Concomitant]
     Route: 042
     Dates: start: 20100923, end: 20100923
  27. VICODIN [Concomitant]
     Indication: PAIN
     Route: 048
     Dates: start: 20090821
  28. TRIAMCINOLONE ACETONIDE [Concomitant]
     Indication: RASH
     Route: 061
     Dates: start: 20090801
  29. ZOLOFT [Concomitant]
     Indication: DEPRESSION
     Route: 048
     Dates: start: 20100301

REACTIONS (2)
  - PULMONARY EMBOLISM [None]
  - DYSPNOEA [None]
